FAERS Safety Report 8510058-6 (Version None)
Quarter: 2012Q3

REPORT INFORMATION
  Report Type: 
  Country: None (occurrence: None)
  Receive Date: 20120713
  Receipt Date: 20120706
  Transmission Date: 20120928
  Serious: Yes (Other)
  Sender: FDA-Public Use
  Company Number: US-ASTRAZENECA-2010SE24469

PATIENT
  Age: 75 Year
  Sex: Male

DRUGS (3)
  1. TOPROL-XL [Suspect]
     Route: 048
  2. RHINOCORT [Suspect]
     Route: 045
  3. NEXIUM [Suspect]
     Route: 048

REACTIONS (5)
  - PARKINSON'S DISEASE [None]
  - MALAISE [None]
  - DRUG INEFFECTIVE [None]
  - HYPERTENSION [None]
  - PROSTATE CANCER [None]
